FAERS Safety Report 9594148 (Version 1)
Quarter: 2013Q3

REPORT INFORMATION
  Report Type: Spontaneous
  Country: US (occurrence: None)
  Receive Date: 20130930
  Receipt Date: 20130930
  Transmission Date: 20140515
  Serious: Yes (Hospitalization)
  Sender: FDA-Public Use
  Company Number: 2013STPI000130

PATIENT
  Age: 65 Year
  Sex: Male

DRUGS (1)
  1. MATULANE [Suspect]
     Indication: MANTLE CELL LYMPHOMA
     Dates: start: 20130308, end: 20130415

REACTIONS (5)
  - Disease progression [None]
  - Brain mass [None]
  - Amnesia [None]
  - Confusional state [None]
  - Gait disturbance [None]
